FAERS Safety Report 6993664-X (Version None)
Quarter: 2010Q3

REPORT INFORMATION
  Report Type: 
  Country: None (occurrence: None)
  Receive Date: 20100917
  Receipt Date: 20070609
  Transmission Date: 20110219
  Serious: Yes (Other)
  Sender: FDA-Public Use
  Company Number: US-ASTRAZENECA-2006UW25953

PATIENT
  Age: 14795 Day
  Sex: Male
  Weight: 83.9 kg

DRUGS (21)
  1. SEROQUEL [Suspect]
     Indication: SCHIZOPHRENIA
     Dosage: STRENGTH - 100 MG, 200 MG, DOSE - 200 - 400 MG DAILY
     Route: 048
     Dates: start: 20040708
  2. SEROQUEL [Suspect]
     Indication: DEPRESSION
     Dosage: STRENGTH - 100 MG, 200 MG, DOSE - 200 - 400 MG DAILY
     Route: 048
     Dates: start: 20040708
  3. SEROQUEL [Suspect]
     Indication: BIPOLAR DISORDER
     Dosage: STRENGTH - 100 MG, 200 MG, DOSE - 200 - 400 MG DAILY
     Route: 048
     Dates: start: 20040708
  4. SEROQUEL [Suspect]
     Dosage: 25 TO 200 MG
     Route: 048
     Dates: start: 20040914, end: 20060223
  5. SEROQUEL [Suspect]
     Dosage: 25 TO 200 MG
     Route: 048
     Dates: start: 20040914, end: 20060223
  6. SEROQUEL [Suspect]
     Dosage: 25 TO 200 MG
     Route: 048
     Dates: start: 20040914, end: 20060223
  7. ZYPREXA [Concomitant]
     Dates: start: 20030522
  8. FLAVOXAMINE [Concomitant]
     Dates: start: 20030522
  9. HYDROXYZINE [Concomitant]
     Dates: start: 20030522
  10. LOPID [Concomitant]
     Route: 048
     Dates: start: 20040708, end: 20060420
  11. LIPITOR [Concomitant]
     Route: 048
     Dates: start: 20040708
  12. GLUCOPHAGE [Concomitant]
     Route: 048
     Dates: start: 20040708
  13. ZESTRIL [Concomitant]
     Dosage: STRENGTH - 10 MG, 20 MG, DOSE - 10 - 20 MG DAILY
     Route: 048
     Dates: start: 20040708
  14. BENADRYL [Concomitant]
     Indication: INSOMNIA
     Route: 048
     Dates: start: 20040708
  15. LEXAPRO [Concomitant]
     Indication: ANXIETY
     Route: 048
     Dates: start: 20040708
  16. LEXAPRO [Concomitant]
     Indication: DEPRESSION
     Route: 048
     Dates: start: 20040708
  17. NEXIUM [Concomitant]
     Dates: start: 20060221
  18. FENOFIBRATE [Concomitant]
     Dates: start: 20060420
  19. ATENOLOL [Concomitant]
     Dates: start: 20060420
  20. PAXIL [Concomitant]
     Dates: start: 20040811
  21. TRAZODONE HCL [Concomitant]
     Dates: start: 20050911

REACTIONS (3)
  - DIABETES MELLITUS [None]
  - DYSLIPIDAEMIA [None]
  - KETOACIDOSIS [None]
